FAERS Safety Report 4760446-9 (Version None)
Quarter: 2005Q3

REPORT INFORMATION
  Report Type: 
  Country: None (occurrence: None)
  Receive Date: 20050902
  Receipt Date: 20050824
  Transmission Date: 20060218
  Serious: Yes (Life-Threatening, Hospitalization)
  Sender: FDA-Public Use
  Company Number: DK-BRISTOL-MYERS SQUIBB COMPANY-13096698

PATIENT
  Age: 62 Year
  Sex: Female

DRUGS (2)
  1. ERBITUX [Suspect]
     Indication: METASTATIC NEOPLASM
     Route: 042
     Dates: start: 20050802, end: 20050802
  2. PREDNISOLONE [Concomitant]
     Indication: DRUG USE FOR UNKNOWN INDICATION

REACTIONS (2)
  - ANAPHYLACTIC SHOCK [None]
  - LIVER DISORDER [None]
